FAERS Safety Report 6346953-6 (Version None)
Quarter: 2009Q3

REPORT INFORMATION
  Report Type: 
  Country: None (occurrence: None)
  Receive Date: 20090908
  Receipt Date: 20090908
  Transmission Date: 20100115
  Serious: Yes (Life-Threatening, Hospitalization, Disabling)
  Sender: FDA-Public Use
  Company Number: None

PATIENT
  Age: 38 Year
  Sex: Female

DRUGS (1)
  1. ZOSYN [Suspect]
     Indication: OSTEOMYELITIS
     Dosage: 3.375GM - 4.5GM Q6H IV
     Route: 042
     Dates: start: 20090624, end: 20090714

REACTIONS (2)
  - LEUKOPENIA [None]
  - NEUTROPENIA [None]
